FAERS Safety Report 18389615 (Version 1)
Quarter: 2020Q4

REPORT INFORMATION
  Report Type: Spontaneous
  Country: JP (occurrence: JP)
  Receive Date: 20201015
  Receipt Date: 20201015
  Transmission Date: 20210114
  Serious: Yes (Other)
  Sender: FDA-Public Use
  Company Number: JP-BAYER-2020-220305

PATIENT

DRUGS (1)
  1. STIVARGA [Suspect]
     Active Substance: REGORAFENIB
     Dosage: 160MG,ADMINISTRATION FOR 3 WEEKS AND THEN STOP FOR 1 WEEK
     Dates: start: 201809, end: 201810

REACTIONS (2)
  - Bile duct stone [None]
  - Liver disorder [None]

NARRATIVE: CASE EVENT DATE: 201905
